FAERS Safety Report 7635328-5 (Version None)
Quarter: 2011Q3

REPORT INFORMATION
  Report Type: 
  Country: None (occurrence: None)
  Receive Date: 20110726
  Receipt Date: 20110712
  Transmission Date: 20111222
  Serious: Yes (Disabling)
  Sender: FDA-Public Use
  Company Number: BR-US-EMD SERONO, INC.-7070561

PATIENT
  Sex: Female

DRUGS (6)
  1. NIMESULIDE [Concomitant]
  2. LIPITOR [Concomitant]
  3. FLUOXETINE [Concomitant]
  4. AZATHIOPRINE [Concomitant]
  5. REBIF [Suspect]
     Indication: PRODUCT USED FOR UNKNOWN INDICATION
     Dates: start: 20061121
  6. LMOSEC [Concomitant]

REACTIONS (5)
  - MUSCLE SPASMS [None]
  - HYPOKINESIA [None]
  - INSOMNIA [None]
  - TEARFULNESS [None]
  - IRRITABILITY [None]
